FAERS Safety Report 7000023-2 (Version None)
Quarter: 2010Q3

REPORT INFORMATION
  Report Type: 
  Country: None (occurrence: None)
  Receive Date: 20100920
  Receipt Date: 20070529
  Transmission Date: 20110219
  Serious: No
  Sender: FDA-Public Use
  Company Number: US-ASTRAZENECA-2006UW25094

PATIENT
  Age: 38 Year
  Sex: Female
  Weight: 99.3 kg

DRUGS (20)
  1. SEROQUEL [Suspect]
     Indication: DEPRESSION
     Dosage: 75 MG-2000 MG DAILY
     Route: 048
     Dates: start: 19970101
  2. SEROQUEL [Suspect]
     Indication: AGITATION
     Dosage: 75 MG-2000 MG DAILY
     Route: 048
     Dates: start: 19970101
  3. SEROQUEL [Suspect]
     Indication: PSYCHOTIC DISORDER
     Dosage: 75 MG-2000 MG DAILY
     Route: 048
     Dates: start: 19970101
  4. SEROQUEL [Suspect]
     Dosage: 25-100 MG. EVERYDAY
     Route: 048
     Dates: end: 20060101
  5. SEROQUEL [Suspect]
     Dosage: 25-100 MG. EVERYDAY
     Route: 048
     Dates: end: 20060101
  6. SEROQUEL [Suspect]
     Dosage: 25-100 MG. EVERYDAY
     Route: 048
     Dates: end: 20060101
  7. ABILIFY [Concomitant]
  8. ZYPREXA [Concomitant]
  9. CELEXA [Concomitant]
     Dates: start: 19960101
  10. LITHIUM [Concomitant]
     Dates: start: 19880101
  11. ATIVAN [Concomitant]
     Dates: start: 20000101
  12. DEPAKOTE [Concomitant]
     Indication: AFFECTIVE DISORDER
     Dosage: 1000 MG-1500 MG DAILY
     Route: 048
     Dates: start: 20050811
  13. KLONOPIN [Concomitant]
     Route: 048
     Dates: start: 20050811
  14. LISINOPRIL [Concomitant]
     Indication: HYPERTENSION
     Dosage: 20 MG-40 MG DAILY
     Route: 048
     Dates: start: 20041022
  15. HYDROCHLOROTHIAZIDE [Concomitant]
     Indication: HYPERTENSION
     Dosage: 25 MG-37.5 MG DAILY
     Route: 048
     Dates: start: 20041022
  16. TRAZODONE HCL [Concomitant]
     Indication: SLEEP DISORDER
     Dosage: 50 MG-100 MG AT NIGHT
     Route: 048
     Dates: start: 20041121
  17. ELAVIL [Concomitant]
     Dates: start: 20040905
  18. OXYCONTIN [Concomitant]
     Indication: URINARY INCONTINENCE
     Route: 048
     Dates: start: 20060430
  19. RISPERIDONE [Concomitant]
     Dates: start: 20040922
  20. THORAZINE [Concomitant]
     Dates: start: 20040922

REACTIONS (2)
  - HYPERGLYCAEMIA [None]
  - HYPOAESTHESIA [None]
